FAERS Safety Report 7917295-X (Version None)
Quarter: 2011Q4

REPORT INFORMATION
  Report Type: 
  Country: None (occurrence: None)
  Receive Date: 20111116
  Receipt Date: 20111108
  Transmission Date: 20120403
  Serious: Yes (Other)
  Sender: FDA-Public Use
  Company Number: PHEH2011US008981

PATIENT
  Sex: Male

DRUGS (5)
  1. ALBUTEROL [Concomitant]
  2. SPIRIVA [Concomitant]
  3. TOBI [Suspect]
     Indication: BRONCHIECTASIS
     Dosage: 300 MG, BID
     Dates: start: 20111105, end: 20111108
  4. PROAIR HFA [Concomitant]
  5. TOBI [Suspect]
     Indication: LUNG INFECTION PSEUDOMONAL

REACTIONS (5)
  - COUGH [None]
  - FEELING ABNORMAL [None]
  - PRODUCTIVE COUGH [None]
  - OEDEMA [None]
  - WEIGHT INCREASED [None]
